FAERS Safety Report 20307603 (Version 5)
Quarter: 2024Q2

REPORT INFORMATION
  Report Type: Other
  Country: US (occurrence: None)
  Receive Date: 20220107
  Receipt Date: 20240611
  Transmission Date: 20240716
  Serious: No
  Sender: FDA-Public Use
  Company Number: US-ROCHE-2988926

PATIENT
  Age: 27 Year
  Sex: Female
  Weight: 89.438 kg

DRUGS (5)
  1. OCREVUS [Suspect]
     Active Substance: OCRELIZUMAB
     Indication: Relapsing-remitting multiple sclerosis
     Dosage: STOPPED TREATMENT IN /OCT/2020 OR /NOV/2020. RESTART TREATMENT, UNKNOWN DATE. LAST DOSE OF OCREVUS:
     Route: 042
     Dates: start: 201907
  2. COPAXONE [Suspect]
     Active Substance: GLATIRAMER ACETATE
     Indication: Multiple sclerosis
     Dosage: INJECTIONS SELF ADMINISTERED TO HER LEG OR ARM.
     Route: 058
  3. VITAMIN D3 [Concomitant]
     Active Substance: CHOLECALCIFEROL
     Dosage: LAST DOSE: 01/JUN/2024
     Route: 048
     Dates: start: 2019
  4. MODAFINIL [Concomitant]
     Active Substance: MODAFINIL
     Indication: Fatigue
     Route: 048
     Dates: start: 20240123
  5. BUSPAR [Concomitant]
     Active Substance: BUSPIRONE HYDROCHLORIDE
     Indication: Anxiety
     Dosage: STOPPED TREATMENT WITH BUSPAR IN /JUN/2023 OR /JUL/2023. PATIENT WAS ON BUSPAR FOR AT LEAST 6 MONTHS

REACTIONS (6)
  - Maternal exposure before pregnancy [Unknown]
  - Upper respiratory tract infection [Not Recovered/Not Resolved]
  - Bronchitis [Not Recovered/Not Resolved]
  - Pharyngitis streptococcal [Not Recovered/Not Resolved]
  - Viral infection [Not Recovered/Not Resolved]
  - Injection site urticaria [Recovered/Resolved]

NARRATIVE: CASE EVENT DATE: 20210301
